FAERS Safety Report 12131388 (Version 1)
Quarter: 2016Q1

REPORT INFORMATION
  Report Type: Spontaneous
  Country: FR (occurrence: FR)
  Receive Date: 20160301
  Receipt Date: 20160301
  Transmission Date: 20160526
  Serious: Yes (Hospitalization)
  Sender: FDA-Public Use
  Company Number: FR-PFIZER INC-2016113370

PATIENT
  Age: 55 Year
  Sex: Female

DRUGS (4)
  1. APRANAX /00256201/ [Suspect]
     Active Substance: NAPROXEN
     Indication: ANKYLOSING SPONDYLITIS
     Dosage: 550 MG, DAILY
     Route: 048
  2. XANAX [Suspect]
     Active Substance: ALPRAZOLAM
     Indication: DEPRESSION
     Dosage: 25 MG, DAILY
     Route: 048
  3. ENBREL [Suspect]
     Active Substance: ETANERCEPT
     Indication: ANKYLOSING SPONDYLITIS
     Dosage: 50 MG, WEEKLY
     Route: 058
     Dates: start: 201503
  4. SERESTA [Suspect]
     Active Substance: OXAZEPAM
     Indication: DEPRESSION
     Dosage: 50 MG, DAILY
     Route: 048

REACTIONS (1)
  - Renal colic [Recovering/Resolving]

NARRATIVE: CASE EVENT DATE: 20160124
